FAERS Safety Report 9257249 (Version 1)
Quarter: 2013Q2

REPORT INFORMATION
  Report Type: Spontaneous
  Country: US (occurrence: None)
  Receive Date: 20130424
  Receipt Date: 20130424
  Transmission Date: 20140414
  Serious: Yes (Hospitalization)
  Sender: FDA-Public Use
  Company Number: None

PATIENT
  Age: 69 Year
  Sex: Male

DRUGS (1)
  1. AFINITOR [Suspect]
     Indication: BREAST CANCER MALE
     Route: 048
     Dates: start: 20130215, end: 20130326

REACTIONS (2)
  - Pneumonia [None]
  - Intestinal obstruction [None]
